FAERS Safety Report 6696802-1 (Version None)
Quarter: 2010Q2

REPORT INFORMATION
  Report Type: 
  Country: None (occurrence: None)
  Receive Date: 20100426
  Receipt Date: 20100408
  Transmission Date: 20101027
  Serious: Yes (Other)
  Sender: FDA-Public Use
  Company Number: ES-BAYER-201021471GPV

PATIENT
  Sex: Female

DRUGS (2)
  1. MIRENA [Suspect]
     Indication: MENORRHAGIA
     Route: 015
     Dates: start: 20090901, end: 20090901
  2. MIRENA [Suspect]
     Route: 015
     Dates: start: 20090901

REACTIONS (7)
  - ABDOMINAL PAIN [None]
  - ACNE [None]
  - BLOOD AMYLASE INCREASED [None]
  - HOT FLUSH [None]
  - HYPERTHYROIDISM [None]
  - PANCREATITIS ACUTE [None]
  - UTERINE SPASM [None]
